FAERS Safety Report 25618812 (Version 1)
Quarter: 2025Q3

REPORT INFORMATION
  Report Type: Spontaneous
  Country: US (occurrence: None)
  Receive Date: 20250729
  Receipt Date: 20250729
  Transmission Date: 20251021
  Serious: Yes (Hospitalization, Disabling)
  Sender: FDA-CTU
  Company Number: None

PATIENT
  Age: 44 Year
  Sex: Female
  Weight: 66 kg

DRUGS (6)
  1. PAXIL [Suspect]
     Active Substance: PAROXETINE HYDROCHLORIDE
     Indication: Depression
     Dosage: DAILY ORAL
     Route: 048
     Dates: start: 20120201, end: 20140201
  2. MIRTAZAPINE [Suspect]
     Active Substance: MIRTAZAPINE
  3. LAMICTAL [Suspect]
     Active Substance: LAMOTRIGINE
  4. LEXAPRO [Suspect]
     Active Substance: ESCITALOPRAM OXALATE
  5. XANAX [Concomitant]
     Active Substance: ALPRAZOLAM
  6. HERBALS [Concomitant]
     Active Substance: HERBALS

REACTIONS (16)
  - Post-traumatic stress disorder [None]
  - Disability [None]
  - Quality of life decreased [None]
  - Depression [None]
  - Suicidal ideation [None]
  - Personality disorder [None]
  - Tremor [None]
  - Hypophagia [None]
  - Stress [None]
  - Fear [None]
  - Chest pain [None]
  - Dyspnoea [None]
  - Gait disturbance [None]
  - Speech disorder [None]
  - Anxiety [None]
  - Loss of personal independence in daily activities [None]

NARRATIVE: CASE EVENT DATE: 20150201
